FAERS Safety Report 6080773-5 (Version None)
Quarter: 2009Q1

REPORT INFORMATION
  Report Type: 
  Country: None (occurrence: None)
  Receive Date: 20090217
  Receipt Date: 20090210
  Transmission Date: 20090719
  Serious: Yes (Hospitalization)
  Sender: FDA-Public Use
  Company Number: PHHY2008GB31662

PATIENT
  Sex: Male

DRUGS (5)
  1. CLOZARIL [Suspect]
     Indication: SCHIZOPHRENIA
     Dosage: 150 MG
     Route: 048
     Dates: start: 20080131
  2. HYOSCINE [Concomitant]
  3. MIRTAZAPINE [Concomitant]
  4. NULYTELY [Concomitant]
  5. FYBOGEL [Concomitant]

REACTIONS (4)
  - CAECUM OPERATION [None]
  - COLECTOMY [None]
  - PSOAS ABSCESS [None]
  - SMALL INTESTINAL OBSTRUCTION [None]
